FAERS Safety Report 13988988 (Version 3)
Quarter: 2017Q4

REPORT INFORMATION
  Report Type: Spontaneous
  Country: BE (occurrence: BE)
  Receive Date: 20170919
  Receipt Date: 20171221
  Transmission Date: 20180321
  Serious: Yes (Death, Life-Threatening, Hospitalization, Other)
  Sender: FDA-Public Use
  Company Number: BE-BRISTOL-MYERS SQUIBB COMPANY-BMS-2017-082872

PATIENT
  Age: 63 Year
  Sex: Male

DRUGS (2)
  1. CASTOR OIL. [Concomitant]
     Active Substance: CASTOR OIL
     Indication: PRODUCT USED FOR UNKNOWN INDICATION
     Route: 065
  2. ELIQUIS [Suspect]
     Active Substance: APIXABAN
     Indication: DEEP VEIN THROMBOSIS
     Dosage: 5 MG, UNK
     Route: 048
     Dates: start: 20170615

REACTIONS (6)
  - Ventricular tachycardia [Unknown]
  - Liver function test abnormal [Unknown]
  - Pyrexia [Recovered/Resolved]
  - Cerebral thrombosis [Fatal]
  - Hyperhidrosis [Unknown]
  - Acute myocardial infarction [Unknown]

NARRATIVE: CASE EVENT DATE: 201707
